FAERS Safety Report 9607278 (Version 2)
Quarter: 2014Q1

REPORT INFORMATION
  Report Type: Spontaneous
  Country: SG (occurrence: SG)
  Receive Date: 20131009
  Receipt Date: 20140225
  Transmission Date: 20141002
  Serious: Yes (Hospitalization)
  Sender: FDA-Public Use
  Company Number: SG-ROCHE-1286124

PATIENT
  Age: 38 Year
  Sex: Female

DRUGS (4)
  1. OMALIZUMAB [Suspect]
     Indication: ASTHMA
     Route: 065
  2. METHOTREXATE [Suspect]
     Indication: ASTHMA
     Route: 065
  3. GLIPIZIDE [Concomitant]
     Route: 065
  4. SITAGLIPTIN [Concomitant]
     Route: 065

REACTIONS (2)
  - Asthma [Unknown]
  - Drug intolerance [Unknown]
